FAERS Safety Report 10018993 (Version 1)
Quarter: 2014Q1

REPORT INFORMATION
  Report Type: Spontaneous
  Country: US (occurrence: US)
  Receive Date: 20140318
  Receipt Date: 20140318
  Transmission Date: 20141002
  Serious: Yes (Other)
  Sender: FDA-Public Use
  Company Number: US-JNJFOC-20140306595

PATIENT
  Age: 57 Year
  Sex: Female
  Weight: 117.94 kg

DRUGS (9)
  1. INVOKANA [Suspect]
     Indication: TYPE 2 DIABETES MELLITUS
     Route: 048
     Dates: start: 20131023, end: 201311
  2. ADVIL [Suspect]
     Indication: PAIN IN EXTREMITY
     Dates: start: 201311
  3. ADVIL [Suspect]
     Indication: MUSCULOSKELETAL PAIN
     Dates: start: 201311
  4. 70/30 NOVOLIN INSULIN [Concomitant]
     Indication: DIABETES MELLITUS
     Dosage: SLIDING SCALE/VARIALBE/ THREE TIMES A DAY
     Route: 058
     Dates: start: 2004
  5. SPIRONOLACTONE [Concomitant]
     Indication: BLOOD PRESSURE
     Route: 048
  6. METOPROLOL [Concomitant]
     Indication: HYPERTENSION
     Route: 048
  7. LOSARTAN [Concomitant]
     Indication: HYPERTENSION
     Route: 048
  8. HYDROCHLOROTHIAZIDE [Concomitant]
     Indication: HYPERTENSION
     Route: 048
  9. ASPIRIN [Concomitant]
     Indication: ANTICOAGULANT THERAPY
     Route: 048
     Dates: start: 2001

REACTIONS (4)
  - Chest pain [Recovered/Resolved]
  - Blood creatinine increased [Recovered/Resolved]
  - Musculoskeletal pain [Recovered/Resolved]
  - Pain in extremity [Recovered/Resolved]
